FAERS Safety Report 19278952 (Version 3)
Quarter: 2021Q4

REPORT INFORMATION
  Report Type: Report from Study
  Country: BR (occurrence: BR)
  Receive Date: 20210520
  Receipt Date: 20211124
  Transmission Date: 20220304
  Serious: Yes (Life-Threatening, Hospitalization, Other)
  Sender: FDA-Public Use
  Company Number: NVSC2021BR113204

PATIENT
  Age: 67 Year
  Sex: Male

DRUGS (1)
  1. COSENTYX [Suspect]
     Active Substance: SECUKINUMAB
     Indication: Psoriasis
     Dosage: 300 MG
     Route: 065
     Dates: start: 20191213

REACTIONS (19)
  - Coma [Unknown]
  - COVID-19 [Recovering/Resolving]
  - Pneumonia [Recovered/Resolved]
  - Pneumonia [Recovering/Resolving]
  - Infection [Recovering/Resolving]
  - Nosocomial infection [Not Recovered/Not Resolved]
  - Gait disturbance [Recovering/Resolving]
  - Arthralgia [Recovering/Resolving]
  - Respiratory rate decreased [Unknown]
  - Weight decreased [Recovering/Resolving]
  - Pain in extremity [Recovering/Resolving]
  - Pain [Recovering/Resolving]
  - Feeling abnormal [Unknown]
  - Spinal deformity [Unknown]
  - Muscular dystrophy [Recovering/Resolving]
  - Vertebral lesion [Recovering/Resolving]
  - Pyrexia [Unknown]
  - Fatigue [Recovering/Resolving]
  - Dyspnoea [Recovering/Resolving]

NARRATIVE: CASE EVENT DATE: 20201125
